FAERS Safety Report 10661425 (Version 1)
Quarter: 2014Q4

REPORT INFORMATION
  Report Type: Report from Study
  Country: US (occurrence: US)
  Receive Date: 20141218
  Receipt Date: 20141218
  Transmission Date: 20150529
  Serious: Yes (Other)
  Sender: FDA-Public Use
  Company Number: US-AMGEN INC.-USASL2014098459

PATIENT
  Age: 2 Month
  Sex: Male
  Weight: 3.6 kg

DRUGS (1)
  1. ENBREL [Suspect]
     Active Substance: ETANERCEPT
     Indication: EXPOSURE DURING PREGNANCY
     Dosage: UNK, QWK
     Route: 064
     Dates: start: 201402, end: 201402

REACTIONS (1)
  - Jaundice neonatal [Unknown]

NARRATIVE: CASE EVENT DATE: 201410
